FAERS Safety Report 8609061-7 (Version None)
Quarter: 2012Q3

REPORT INFORMATION
  Report Type: 
  Country: None (occurrence: None)
  Receive Date: 20120821
  Receipt Date: 20120820
  Transmission Date: 20120928
  Serious: Yes (Death, Life-Threatening, Hospitalization, Disabling, Other)
  Sender: FDA-Public Use
  Company Number: CA-JNJFOC-20120500887

PATIENT
  Sex: Male
  Weight: 65 kg

DRUGS (4)
  1. ABIRATERONE ACETATE [Suspect]
     Indication: PROSTATE CANCER METASTATIC
     Route: 048
     Dates: start: 20120416, end: 20120423
  2. PHOSPHATE [Concomitant]
     Indication: HYPOPHOSPHATAEMIA
     Route: 065
     Dates: start: 20120402, end: 20120419
  3. PREDNISONE TAB [Suspect]
     Indication: PROSTATE CANCER METASTATIC
     Route: 048
     Dates: start: 20120402
  4. ABIRATERONE ACETATE [Suspect]
     Route: 048
     Dates: start: 20120427, end: 20120429

REACTIONS (4)
  - ALTERED STATE OF CONSCIOUSNESS [None]
  - PLATELET COUNT DECREASED [None]
  - DEATH [None]
  - NEUTROPENIA [None]
